FAERS Safety Report 15781094 (Version 2)
Quarter: 2019Q3

REPORT INFORMATION
  Report Type: Spontaneous
  Country: NL (occurrence: NL)
  Receive Date: 20190102
  Receipt Date: 20190816
  Transmission Date: 20191004
  Serious: Yes (Life-Threatening)
  Sender: FDA-Public Use
  Company Number: NL-ACCORD-099284

PATIENT
  Age: 84 Year
  Sex: Male
  Weight: 59 kg

DRUGS (5)
  1. MACROGOL/MACROGOL STEARATE [Concomitant]
     Dosage: 3X PER WEEK 1 PIECE
  2. ZINC OXIDE. [Concomitant]
     Active Substance: ZINC OXIDE
  3. QUETIAPINE. [Suspect]
     Active Substance: QUETIAPINE
     Indication: HALLUCINATION
     Dosage: 2X DAILY 1 PIECE, TABLET MGA 50MG MODIFIED-RELEASE TABLET, 50 MG (ML
     Dates: start: 20180106, end: 20180116
  4. COLECALCIFEROL [Concomitant]
     Active Substance: CHOLECALCIFEROL
     Dosage: 1 X PER WEEK 1 TABLET OF 5600IU
  5. PARACETAMOL [Concomitant]
     Active Substance: ACETAMINOPHEN
     Dosage: 3 DD 2 TABL VAN 500MG ( 1000 MG)

REACTIONS (5)
  - Off label use [Unknown]
  - Disturbance in attention [Recovered/Resolved]
  - Somnolence [Recovered/Resolved]
  - Gait disturbance [Recovered/Resolved]
  - Asthenia [Recovered/Resolved]

NARRATIVE: CASE EVENT DATE: 20180108
